FAERS Safety Report 4686380-0 (Version None)
Quarter: 2005Q2

REPORT INFORMATION
  Report Type: 
  Country: None (occurrence: None)
  Receive Date: 20050606
  Receipt Date: 20050525
  Transmission Date: 20051028
  Serious: Yes (Hospitalization, Other)
  Sender: FDA-Public Use
  Company Number: 2005079342

PATIENT
  Age: 80 Year
  Sex: Female

DRUGS (8)
  1. ATARAX [Suspect]
     Indication: ILL-DEFINED DISORDER
     Dosage: 12.5 MG ORAL
     Route: 048
     Dates: end: 20050425
  2. CELIPROLOL HYDROCHLORIDE (CELIPROLOL HYDROCHLORIDE) [Suspect]
     Indication: ILL-DEFINED DISORDER
     Dosage: 200 MG ORAL
     Route: 048
     Dates: start: 20050301, end: 20050425
  3. INDAPAMIDE [Suspect]
     Indication: ILL-DEFINED DISORDER
     Dosage: 4 MG ORAL
     Route: 048
     Dates: end: 20050425
  4. CORVASAL (MOLSIDOMINE) [Suspect]
     Indication: ILL-DEFINED DISORDER
     Dosage: 4 MG ORAL
     Route: 048
     Dates: end: 20050425
  5. PLAVIX [Suspect]
     Indication: ILL-DEFINED DISORDER
     Dosage: 75 MG ORAL
     Route: 048
     Dates: start: 20050301, end: 20050425
  6. COZAAR [Suspect]
     Indication: ILL-DEFINED DISORDER
     Dosage: 25 MG ORAL
     Route: 048
     Dates: start: 20050301, end: 20050425
  7. NITROGLYCERIN [Concomitant]
  8. TRIMEBUTINE [Concomitant]

REACTIONS (9)
  - CEREBROVASCULAR ACCIDENT [None]
  - EPISTAXIS [None]
  - GINGIVAL BLEEDING [None]
  - HYPERTENSIVE CRISIS [None]
  - PETECHIAE [None]
  - PURPURA [None]
  - RENAL FAILURE [None]
  - SPINAL MYELOGRAM ABNORMAL [None]
  - THROMBOCYTOPENIA [None]
